FAERS Safety Report 5861743-6 (Version None)
Quarter: 2008Q3

REPORT INFORMATION
  Report Type: 
  Country: None (occurrence: None)
  Receive Date: 20080827
  Receipt Date: 20080714
  Transmission Date: 20090109
  Serious: No
  Sender: FDA-Public Use
  Company Number: US-ABBOTT-08P-163-0462380-00

PATIENT
  Age: 70 Year
  Sex: Male

DRUGS (3)
  1. COATED PDS [Suspect]
     Indication: DRUG USE FOR UNKNOWN INDICATION
     Route: 048
     Dates: start: 20080501
  2. COATED PDS [Suspect]
     Route: 048
  3. COATED PDS [Suspect]
     Dosage: UNCOATED
     Dates: start: 20071101, end: 20080501

REACTIONS (1)
  - FLUSHING [None]
